FAERS Safety Report 5971062-5 (Version None)
Quarter: 2008Q4

REPORT INFORMATION
  Report Type: 
  Country: None (occurrence: None)
  Receive Date: 20081128
  Receipt Date: 20081118
  Transmission Date: 20090506
  Serious: Yes (Other)
  Sender: FDA-Public Use
  Company Number: DE-JNJFOC-20081104354

PATIENT
  Sex: Male
  Weight: 88 kg

DRUGS (1)
  1. RISPERDAL [Suspect]
     Indication: DRUG USE FOR UNKNOWN INDICATION
     Route: 048

REACTIONS (5)
  - DYSPNOEA [None]
  - EXTRAPYRAMIDAL DISORDER [None]
  - INTENTIONAL OVERDOSE [None]
  - SENSATION OF FOREIGN BODY [None]
  - SUICIDE ATTEMPT [None]
